FAERS Safety Report 8261959-8 (Version None)
Quarter: 2012Q2

REPORT INFORMATION
  Report Type: 
  Country: None (occurrence: None)
  Receive Date: 20120402
  Receipt Date: 20120319
  Transmission Date: 20120825
  Serious: Yes (Hospitalization)
  Sender: FDA-Public Use
  Company Number: ACO_29464_2012

PATIENT
  Age: 63 Year
  Sex: Female

DRUGS (6)
  1. DELIX /00885601/ (RAMIPRIL) [Concomitant]
  2. PERENTEROL /00243701/ (YEAST DRIED) [Concomitant]
  3. FAMPYRA (DALFAMPRIDINE) TABLET, 10MG [Suspect]
     Indication: MULTIPLE SCLEROSIS
     Dosage: 10 MG, BID, ORAL
     Route: 048
     Dates: start: 20120207, end: 20120210
  4. CALCIUM CARBONATE [Concomitant]
  5. NEURONTIN [Concomitant]
  6. SPASMEX /00376202/ (TROSPIUM CHLORIDE) [Concomitant]

REACTIONS (5)
  - LOBAR PNEUMONIA [None]
  - CONFUSIONAL STATE [None]
  - RENAL FAILURE [None]
  - OVERDOSE [None]
  - MEDICATION ERROR [None]
